FAERS Safety Report 10183683 (Version 2)
Quarter: 2014Q2

REPORT INFORMATION
  Report Type: Spontaneous
  Country: US (occurrence: US)
  Receive Date: 20140520
  Receipt Date: 20140613
  Transmission Date: 20141212
  Serious: No
  Sender: FDA-Public Use
  Company Number: US-PFIZER INC-2014134788

PATIENT
  Sex: Male

DRUGS (4)
  1. INLYTA [Suspect]
     Indication: RENAL CANCER STAGE IV
     Dosage: 5 MG, 2X/DAY
     Dates: start: 20140513
  2. INLYTA [Suspect]
  3. FLECAINIDE ACETATE [Concomitant]
     Indication: ARRHYTHMIA
     Dosage: 100 MG, 2X/DAY
  4. ALPRAZOLAM [Concomitant]
     Indication: ANXIETY
     Dosage: UNK, AS NEEDED

REACTIONS (2)
  - Diarrhoea [Recovered/Resolved]
  - Expired product administered [Unknown]
